FAERS Safety Report 6903728-4 (Version None)
Quarter: 2010Q3

REPORT INFORMATION
  Report Type: 
  Country: None (occurrence: None)
  Receive Date: 20100804
  Receipt Date: 20081201
  Transmission Date: 20110219
  Serious: No
  Sender: FDA-Public Use
  Company Number: US-PFIZER INC-2008087686

PATIENT
  Sex: Female
  Weight: 65.9 kg

DRUGS (3)
  1. LYRICA [Suspect]
     Indication: SPINAL COLUMN STENOSIS
     Dosage: 50 MG, UNK
     Route: 048
     Dates: start: 20081007, end: 20081008
  2. AMLODIPINE BESYLATE/VALSARTAN [Concomitant]
     Route: 048
  3. DRUG, UNSPECIFIED [Concomitant]
     Route: 048

REACTIONS (4)
  - ASTHENIA [None]
  - DIZZINESS [None]
  - DRUG INTOLERANCE [None]
  - SOMNOLENCE [None]
